FAERS Safety Report 8973925 (Version 2)
Quarter: 2013Q4

REPORT INFORMATION
  Report Type: Spontaneous
  Country: CA (occurrence: CA)
  Receive Date: 20121218
  Receipt Date: 20131025
  Transmission Date: 20140711
  Serious: Yes (Hospitalization, Other)
  Sender: FDA-Public Use
  Company Number: PHHY2012CA115191

PATIENT
  Age: 17 Year
  Sex: Female

DRUGS (1)
  1. OLANZAPINE [Suspect]
     Dosage: ESTIMATED 2-5 TABLETS; 28MG (2.2 MG/KG)
     Route: 048

REACTIONS (10)
  - Respiratory distress [Recovered/Resolved]
  - Extrapyramidal disorder [Recovered/Resolved]
  - Pyrexia [Recovered/Resolved]
  - Ataxia [Recovered/Resolved]
  - Tremor [Recovered/Resolved]
  - Blood prolactin increased [Recovered/Resolved]
  - Somnolence [Recovered/Resolved]
  - Lethargy [Recovered/Resolved]
  - Accidental overdose [Recovered/Resolved]
  - Accidental exposure to product [Recovered/Resolved]
